FAERS Safety Report 14859485 (Version 1)
Quarter: 2018Q2

REPORT INFORMATION
  Report Type: Spontaneous
  Country: CN (occurrence: CN)
  Receive Date: 20180508
  Receipt Date: 20180508
  Transmission Date: 20180711
  Serious: Yes (Hospitalization, Other)
  Sender: FDA-Public Use
  Company Number: CN-BAYER-2018-084204

PATIENT
  Age: 53 Year
  Sex: Male
  Weight: 70 kg

DRUGS (5)
  1. PLAVIX [Suspect]
     Active Substance: CLOPIDOGREL BISULFATE
     Indication: CORONARY ARTERIAL STENT INSERTION
     Dosage: 75 MG, QD
     Route: 048
     Dates: start: 20180209, end: 20180327
  2. DIOVAN [VALSARTAN] [Concomitant]
     Indication: ARTERIOSCLEROSIS CORONARY ARTERY
     Dosage: 80 MG, QD
     Route: 048
     Dates: start: 20180101, end: 20180327
  3. BAYASPIRIN 100 MG [Suspect]
     Active Substance: ASPIRIN
     Indication: ARTERIOSCLEROSIS CORONARY ARTERY
     Dosage: 0.1 G, QD
     Route: 048
     Dates: start: 20180101, end: 20180327
  4. NORVASC [Concomitant]
     Active Substance: AMLODIPINE BESYLATE
     Indication: ARTERIOSCLEROSIS CORONARY ARTERY
     Dosage: 5 MG, QD
     Route: 048
     Dates: start: 20180101, end: 20180327
  5. NOVORAPID [Concomitant]
     Active Substance: INSULIN ASPART
     Indication: DIABETES MELLITUS
     Dosage: 14 U, BID
     Route: 058
     Dates: start: 20180101, end: 20180328

REACTIONS (2)
  - Upper gastrointestinal haemorrhage [Recovering/Resolving]
  - Blood fibrinogen increased [Recovering/Resolving]

NARRATIVE: CASE EVENT DATE: 20180305
